FAERS Safety Report 9583956 (Version 1)
Quarter: 2013Q4

REPORT INFORMATION
  Report Type: Spontaneous
  Country: US (occurrence: US)
  Receive Date: 20131002
  Receipt Date: 20131002
  Transmission Date: 20140711
  Serious: No
  Sender: FDA-Public Use
  Company Number: US-AMGEN-USASP2013050284

PATIENT
  Age: 33 Year
  Sex: Male
  Weight: 104.31 kg

DRUGS (4)
  1. ENBREL [Suspect]
     Indication: PRODUCT USED FOR UNKNOWN INDICATION
     Dosage: 50 MG, EVERY OTHER WEEK
     Route: 058
  2. BENAZEPRIL [Concomitant]
     Dosage: 10 MG, UNK
  3. PREVACID [Concomitant]
     Dosage: 30 MG, UNK
  4. IBUPROFEN [Concomitant]
     Dosage: 200 MG, UNK

REACTIONS (3)
  - Hepatic steatosis [Unknown]
  - Pain [Unknown]
  - Hepatic enzyme increased [Unknown]
